FAERS Safety Report 13932887 (Version 1)
Quarter: 2017Q3

REPORT INFORMATION
  Report Type: Spontaneous
  Country: US (occurrence: US)
  Receive Date: 20170904
  Receipt Date: 20170904
  Transmission Date: 20171127
  Serious: Yes (Other)
  Sender: FDA-Public Use
  Company Number: US-PFIZER INC-2017382287

PATIENT
  Age: 59 Year
  Sex: Male

DRUGS (1)
  1. XELJANZ [Suspect]
     Active Substance: TOFACITINIB CITRATE
     Dosage: 5 MG, 2X/DAY

REACTIONS (10)
  - Condition aggravated [Unknown]
  - Tenderness [Unknown]
  - Gastrointestinal ulcer haemorrhage [Unknown]
  - Pain [Unknown]
  - Atrial fibrillation [Unknown]
  - Diarrhoea [Unknown]
  - Paraesthesia [Unknown]
  - Joint range of motion decreased [Unknown]
  - Swelling [Unknown]
  - Musculoskeletal stiffness [Unknown]
